FAERS Safety Report 7824280-5 (Version None)
Quarter: 2011Q4

REPORT INFORMATION
  Report Type: 
  Country: None (occurrence: None)
  Receive Date: 20111019
  Receipt Date: 20111011
  Transmission Date: 20120403
  Serious: Yes (Other)
  Sender: FDA-Public Use
  Company Number: CA-NOVOPROD-337057

PATIENT

DRUGS (8)
  1. NEXIUM [Concomitant]
  2. COVERSYL                           /00790702/ [Concomitant]
  3. SYNTHROID [Concomitant]
  4. VICTOZA [Suspect]
     Indication: PRODUCT USED FOR UNKNOWN INDICATION
     Dosage: 0.6 MG, QD
     Route: 065
  5. ALLOPURINOL [Concomitant]
  6. EZETIMIBE [Concomitant]
  7. PIOGLITAZONE [Concomitant]
  8. PRAVASTATIN SODIUM [Concomitant]

REACTIONS (5)
  - MALAISE [None]
  - SYNCOPE [None]
  - VOMITING [None]
  - FALL [None]
  - CONTUSION [None]
